FAERS Safety Report 20690292 (Version 1)
Quarter: 2022Q2

REPORT INFORMATION
  Report Type: Spontaneous
  Country: HR (occurrence: HR)
  Receive Date: 20220408
  Receipt Date: 20220408
  Transmission Date: 20220721
  Serious: Yes (Other)
  Sender: FDA-Public Use
  Company Number: None

PATIENT
  Sex: Female

DRUGS (2)
  1. QUETIAPINE FUMARATE [Suspect]
     Active Substance: QUETIAPINE FUMARATE
     Dosage: 500MG, FREQUENCY TIME 1DAYS, DURATION 1DAYS,ADR IS ADEQUATELY LABELLED:?SOMNOLENCE: YES?TREMOR: NO?T
     Route: 048
     Dates: start: 20211212, end: 20211212
  2. CLOZAPINE [Suspect]
     Active Substance: CLOZAPINE
     Dosage: 500MG, FREQUENCY TIME 1DAYS, DURATION 1DAYS, ADR IS ADEQUATELY LABELLED.
     Route: 048
     Dates: start: 20211212, end: 20211212

REACTIONS (5)
  - Intentional overdose [Unknown]
  - Suicide attempt [Unknown]
  - Somnolence [Unknown]
  - Tremor [Unknown]
  - Tachycardia [Unknown]

NARRATIVE: CASE EVENT DATE: 20211212
